FAERS Safety Report 19286555 (Version 1)
Quarter: 2021Q2

REPORT INFORMATION
  Report Type: Spontaneous
  Country: US (occurrence: US)
  Receive Date: 20210522
  Receipt Date: 20210522
  Transmission Date: 20210717
  Serious: No
  Sender: FDA-Public Use
  Company Number: US-SA-2021SA164684

PATIENT
  Age: 54 Year
  Sex: Male

DRUGS (1)
  1. LANTUS SOLOSTAR [Suspect]
     Active Substance: INSULIN GLARGINE
     Dosage: DRUG STRUCTURE DOSAGE : 34 AND 38 UNITS DRUG INTERVAL DOSAGE : MORNING AND NIGHT DRUG TREATMENT DURA

REACTIONS (1)
  - Product use issue [Unknown]
